FAERS Safety Report 6476702-2 (Version None)
Quarter: 2009Q4

REPORT INFORMATION
  Report Type: 
  Country: None (occurrence: None)
  Receive Date: 20091207
  Receipt Date: 20091130
  Transmission Date: 20100525
  Serious: Yes (Death, Hospitalization)
  Sender: FDA-Public Use
  Company Number: US-ROCHE-670313

PATIENT
  Age: 65 Year
  Sex: Male

DRUGS (9)
  1. CELLCEPT [Suspect]
     Indication: AUTOIMMUNE DISORDER
     Dosage: DOSE TITRATED TO 2500 MG DAILY
     Route: 065
     Dates: start: 20010101
  2. CELLCEPT [Suspect]
     Dosage: DOSE TAPPERED
     Route: 065
     Dates: end: 20061201
  3. RITUXIMAB [Suspect]
     Route: 065
     Dates: start: 20061106
  4. RITUXIMAB [Suspect]
     Route: 065
  5. RITUXIMAB [Suspect]
     Route: 065
  6. METHOTREXATE [Suspect]
     Route: 065
  7. METHOTREXATE [Suspect]
     Dosage: HIGH DOSE METHOTREXATE THERAPY.
     Route: 065
  8. DEXAMETHASONE [Suspect]
     Route: 065
  9. GANCICLOVIR [Concomitant]
     Dosage: ROUTE: ORAL AND INTRAVENOUS
     Route: 050

REACTIONS (6)
  - BK VIRUS INFECTION [None]
  - CENTRAL NERVOUS SYSTEM LYMPHOMA [None]
  - CYTOMEGALOVIRUS INFECTION [None]
  - GLOMERULONEPHRITIS MEMBRANOUS [None]
  - MALIGNANT MELANOMA [None]
  - WEIGHT DECREASED [None]
